FAERS Safety Report 8336066-6 (Version None)
Quarter: 2012Q2

REPORT INFORMATION
  Report Type: 
  Country: None (occurrence: None)
  Receive Date: 20120501
  Receipt Date: 20120501
  Transmission Date: 20120825
  Serious: Yes (Hospitalization)
  Sender: FDA-Public Use
  Company Number: None

PATIENT
  Age: 46 Year
  Sex: Male
  Weight: 244 kg

DRUGS (5)
  1. CACIUM OS-CAL [Concomitant]
  2. LISINOPRIL [Suspect]
     Indication: HYPERTENSION
     Dosage: 40MG DAILY PO CHRONIC
     Route: 048
  3. SIMVASTATIN [Concomitant]
  4. METFORMIN [Concomitant]
  5. CHLORTHALIDONE [Concomitant]

REACTIONS (1)
  - PALATAL OEDEMA [None]
